FAERS Safety Report 13250067 (Version 1)
Quarter: 2017Q1

REPORT INFORMATION
  Report Type: Spontaneous
  Country: US (occurrence: US)
  Receive Date: 20170218
  Receipt Date: 20170218
  Transmission Date: 20170428
  Serious: No
  Sender: FDA-Public Use
  Company Number: US-ALLERGAN-1666506US

PATIENT
  Sex: Female

DRUGS (2)
  1. FLAXSEED [Concomitant]
     Active Substance: FLAX SEED
     Dosage: UNK
     Route: 048
  2. RESTASIS [Suspect]
     Active Substance: CYCLOSPORINE
     Indication: DRY EYE
     Dosage: UNK
     Dates: end: 2015

REACTIONS (5)
  - Ocular hyperaemia [Not Recovered/Not Resolved]
  - Cataract [Unknown]
  - Eye inflammation [Not Recovered/Not Resolved]
  - Wrong technique in product usage process [Unknown]
  - Drug dose omission [Unknown]
